FAERS Safety Report 25902808 (Version 2)
Quarter: 2025Q4

REPORT INFORMATION
  Report Type: Spontaneous
  Country: US (occurrence: US)
  Receive Date: 20251009
  Receipt Date: 20251031
  Transmission Date: 20260118
  Serious: Yes (Life-Threatening, Hospitalization, Other)
  Sender: IONIS PHARMACEUTICALS
  Company Number: US-IONIS PHARMACEUTICALS, INC.-2025IS003287

PATIENT

DRUGS (4)
  1. TRYNGOLZA [Suspect]
     Active Substance: OLEZARSEN SODIUM
     Indication: Familial hypertriglyceridaemia
     Dosage: UNK UNK, Q1M
     Route: 058
  2. ROSUVASTATIN [Concomitant]
     Active Substance: ROSUVASTATIN
     Indication: Pancreatitis
     Dosage: 40 MILLIGRAM
     Route: 065
     Dates: start: 202402
  3. FENOFIBRATE [Concomitant]
     Active Substance: FENOFIBRATE
     Indication: Pancreatitis
     Dosage: 160 MILLIGRAM
     Route: 065
     Dates: start: 202312
  4. OMEGA 3 [Concomitant]
     Active Substance: CAPSAICIN
     Indication: Product used for unknown indication
     Route: 065

REACTIONS (2)
  - Pancreatitis acute [Recovered/Resolved with Sequelae]
  - Blood triglycerides increased [Recovering/Resolving]

NARRATIVE: CASE EVENT DATE: 20250818
